FAERS Safety Report 24831316 (Version 1)
Quarter: 2025Q1

REPORT INFORMATION
  Report Type: Spontaneous
  Country: US (occurrence: US)
  Receive Date: 20250110
  Receipt Date: 20250110
  Transmission Date: 20250409
  Serious: No
  Sender: SANOFI AVENTIS
  Company Number: US-SANOFI-02361606

PATIENT

DRUGS (1)
  1. TZIELD [Suspect]
     Active Substance: TEPLIZUMAB-MZWV
     Route: 065
     Dates: end: 20241220

REACTIONS (4)
  - Infusion site pain [Not Recovered/Not Resolved]
  - Pain [Unknown]
  - Rash maculo-papular [Not Recovered/Not Resolved]
  - Fatigue [Unknown]
